FAERS Safety Report 4831677-4 (Version None)
Quarter: 2005Q4

REPORT INFORMATION
  Report Type: 
  Country: None (occurrence: None)
  Receive Date: 20051116
  Receipt Date: 20051107
  Transmission Date: 20060501
  Serious: Yes (Death, Life-Threatening, Hospitalization)
  Sender: FDA-Public Use
  Company Number: 200513792GDS

PATIENT
  Age: 73 Year
  Sex: Male
  Weight: 83 kg

DRUGS (10)
  1. ADIRO 100 (ACETYLSALICYLIC ACID) [Suspect]
     Indication: ANGINA PECTORIS
     Dosage: 100 MG, TOTAL DAILY, ORAL
     Route: 048
     Dates: start: 20050912, end: 20050916
  2. ENOXAPARIN SODIUM [Suspect]
     Indication: ANGINA PECTORIS
     Dosage: 120 MG, TOTAL DAILY, SUBCUTANEOUS
     Route: 058
     Dates: start: 20050912, end: 20050915
  3. PLAVIX [Suspect]
     Indication: ANGINA PECTORIS
     Dosage: 75 MG, TOTAL DAILY, ORAL
     Route: 048
     Dates: start: 20050912, end: 20050916
  4. FUROSEMIDE [Suspect]
     Dosage: 20 MG, TOTAL DAILY, INTRAVENOUS
     Route: 042
     Dates: start: 20050911, end: 20050921
  5. AUGMENTIN '125' [Suspect]
     Indication: PYREXIA
     Dosage: 3 G, TOTAL DAILY, INTRAVENOUS
     Route: 042
     Dates: start: 20050911, end: 20050921
  6. METHYLPREDNISOLONE [Suspect]
     Indication: CHRONIC OBSTRUCTIVE PULMONARY DISEASE
     Dosage: 60 MG, TOTAL DAILY, INTRAVENOUS
     Route: 042
     Dates: start: 20050911, end: 20050921
  7. CARDYL [Concomitant]
  8. CESPLON [Concomitant]
  9. MANIDON [Concomitant]
  10. NITRODERM [Concomitant]

REACTIONS (4)
  - CHRONIC OBSTRUCTIVE PULMONARY DISEASE [None]
  - HYPERCALCAEMIA [None]
  - MYOCARDIAL ISCHAEMIA [None]
  - THROMBOCYTOPENIA [None]
